FAERS Safety Report 7162544-1 (Version None)
Quarter: 2010Q4

REPORT INFORMATION
  Report Type: 
  Country: None (occurrence: None)
  Receive Date: 20101215
  Receipt Date: 20091118
  Transmission Date: 20110411
  Serious: Yes (Other)
  Sender: FDA-Public Use
  Company Number: US-PFIZER INC-2009271821

PATIENT
  Sex: Female
  Weight: 86.2 kg

DRUGS (3)
  1. LYRICA [Suspect]
     Indication: SURGERY
     Dosage: 75 MG, UNK
     Route: 048
     Dates: start: 20080714
  2. FLURAZEPAM HYDROCHLORIDE [Concomitant]
     Dosage: 30 MG, UNK
     Dates: start: 20080725
  3. ACETAMINOPHEN AND HYDROCODONE BITARTRATE [Concomitant]
     Dosage: 7.5/500MG
     Dates: start: 20080808

REACTIONS (11)
  - ARTHRALGIA [None]
  - DRUG INEFFECTIVE [None]
  - DYSSTASIA [None]
  - FEELING ABNORMAL [None]
  - GAIT DISTURBANCE [None]
  - MALAISE [None]
  - NAUSEA [None]
  - OSTEOARTHRITIS [None]
  - PAIN IN EXTREMITY [None]
  - RADICULOPATHY [None]
  - VERTIGO [None]
